FAERS Safety Report 6199615-2 (Version None)
Quarter: 2009Q2

REPORT INFORMATION
  Report Type: 
  Country: None (occurrence: None)
  Receive Date: 20090522
  Receipt Date: 20090323
  Transmission Date: 20091009
  Serious: No
  Sender: FDA-Public Use
  Company Number: A0774832A

PATIENT
  Age: 43 Year
  Sex: Female

DRUGS (2)
  1. BACTROBAN [Suspect]
     Dosage: 1APP TWICE PER DAY
     Route: 045
     Dates: start: 20090228
  2. BACTRIM [Concomitant]

REACTIONS (2)
  - FEELING HOT [None]
  - FLUSHING [None]
